FAERS Safety Report 4811938-5 (Version None)
Quarter: 2005Q4

REPORT INFORMATION
  Report Type: 
  Country: None (occurrence: None)
  Receive Date: 20051028
  Receipt Date: 20041019
  Transmission Date: 20060501
  Serious: Yes (Hospitalization)
  Sender: FDA-Public Use
  Company Number: US-GLAXOSMITHKLINE-A0530380A

PATIENT
  Age: 76 Year
  Sex: Female

DRUGS (8)
  1. ADVAIR DISKUS 100/50 [Suspect]
     Indication: CHRONIC OBSTRUCTIVE PULMONARY DISEASE
     Dosage: 1PUFF TWICE PER DAY
     Route: 055
  2. LASIX [Concomitant]
  3. K-DUR 10 [Concomitant]
  4. LISINOPRIL [Concomitant]
  5. GLUCOPHAGE [Concomitant]
  6. PREDNISONE [Concomitant]
  7. LEVAQUIN [Concomitant]
  8. BACTRIM [Concomitant]

REACTIONS (2)
  - DRUG INEFFECTIVE [None]
  - PHARMACEUTICAL PRODUCT COMPLAINT [None]
